FAERS Safety Report 21445246 (Version 1)
Quarter: 2022Q4

REPORT INFORMATION
  Report Type: Spontaneous
  Country: CN (occurrence: CN)
  Receive Date: 20221012
  Receipt Date: 20221012
  Transmission Date: 20230113
  Serious: Yes (Other)
  Sender: FDA-Public Use
  Company Number: CN-BAYER-2022A139383

PATIENT
  Age: 32 Year
  Sex: Female
  Weight: 65 kg

DRUGS (2)
  1. GADOBUTROL [Suspect]
     Active Substance: GADOBUTROL
     Indication: Magnetic resonance imaging
     Dosage: 7 ML, ONCE
     Route: 042
     Dates: start: 20220915, end: 20220915
  2. GADOBUTROL [Suspect]
     Active Substance: GADOBUTROL
     Indication: Pelvic neoplasm

REACTIONS (2)
  - Haemorrhage subcutaneous [None]
  - Rash erythematous [Recovering/Resolving]

NARRATIVE: CASE EVENT DATE: 20220915
